FAERS Safety Report 5011599-9 (Version None)
Quarter: 2006Q2

REPORT INFORMATION
  Report Type: 
  Country: None (occurrence: None)
  Receive Date: 20060404
  Receipt Date: 20051104
  Transmission Date: 20061013
  Serious: No
  Sender: FDA-Public Use
  Company Number: USA0511112749

PATIENT
  Age: 49 Year
  Sex: Female

DRUGS (6)
  1. CYMBALTA [Suspect]
     Indication: ANXIETY
     Dosage: 60 MG, DAILY (1/D), ORAL
     Route: 048
     Dates: start: 20050601, end: 20051001
  2. PROZAC [Suspect]
     Indication: MAJOR DEPRESSION
     Dosage: ORAL
     Route: 048
     Dates: start: 20050401, end: 20050601
  3. SYNTHROID [Concomitant]
  4. PROFEN [Concomitant]
  5. ZELNORM [Concomitant]
  6. RELPAX (ELETRIPTAN HYDROBROMIDE) [Concomitant]

REACTIONS (3)
  - DRUG INEFFECTIVE [None]
  - MIGRAINE [None]
  - SKELETAL INJURY [None]
